FAERS Safety Report 4898073-5 (Version None)
Quarter: 2006Q1

REPORT INFORMATION
  Report Type: 
  Country: None (occurrence: None)
  Receive Date: 20060130
  Receipt Date: 20060112
  Transmission Date: 20060701
  Serious: Yes (Other)
  Sender: FDA-Public Use
  Company Number: 2006BL000231

PATIENT
  Age: 8 Year
  Sex: Male
  Weight: 49.4421 kg

DRUGS (3)
  1. DESMOPRESSIN ACETATE [Suspect]
     Indication: ENURESIS
     Dates: start: 20050601
  2. VITAMINS [Concomitant]
  3. IRON [Concomitant]

REACTIONS (5)
  - CONFUSIONAL STATE [None]
  - FACIAL PALSY [None]
  - HEADACHE [None]
  - STRESS [None]
  - WEIGHT INCREASED [None]
